FAERS Safety Report 16095581 (Version 2)
Quarter: 2019Q2

REPORT INFORMATION
  Report Type: Spontaneous
  Country: DE (occurrence: DE)
  Receive Date: 20190320
  Receipt Date: 20190401
  Transmission Date: 20190711
  Serious: Yes (Hospitalization)
  Sender: FDA-Public Use
  Company Number: DE-BAYER-2019-049540

PATIENT
  Age: 60 Year
  Sex: Male

DRUGS (4)
  1. BETAFERON [Suspect]
     Active Substance: INTERFERON BETA-1B
     Indication: MULTIPLE SCLEROSIS
     Dosage: 1 UNK
     Route: 058
  2. BETAFERON [Suspect]
     Active Substance: INTERFERON BETA-1B
     Indication: MULTIPLE SCLEROSIS
     Dosage: 1 DF, ONCE, LAST RECORDED INJECTION
     Route: 058
     Dates: start: 20190309, end: 20190309
  3. BETACONNECT [Suspect]
     Active Substance: DEVICE
     Indication: MULTIPLE SCLEROSIS
     Dosage: UNK
     Route: 058
  4. BETACONNECT [Suspect]
     Active Substance: DEVICE
     Indication: MULTIPLE SCLEROSIS
     Dosage: 1 DF, ONCE, LAST RECORDED INJECTION
     Route: 058
     Dates: start: 20190309, end: 20190309

REACTIONS (16)
  - Chills [Unknown]
  - Hyperhidrosis [Unknown]
  - Injection site bruising [Unknown]
  - Injection site induration [Unknown]
  - Incorrect dose administered by device [Unknown]
  - Device malfunction [Unknown]
  - Injection site erythema [Unknown]
  - Injection site erythema [Recovered/Resolved]
  - Injection site induration [Unknown]
  - Accident [Unknown]
  - Device malfunction [Unknown]
  - Foot operation [Unknown]
  - Injection site warmth [Unknown]
  - Injection site erythema [Unknown]
  - Incorrect dose administered by device [Unknown]
  - Injection site pain [Unknown]

NARRATIVE: CASE EVENT DATE: 20160808
